FAERS Safety Report 17763599 (Version 1)
Quarter: 2020Q2

REPORT INFORMATION
  Report Type: Spontaneous
  Country: NL (occurrence: NL)
  Receive Date: 20200509
  Receipt Date: 20200509
  Transmission Date: 20200714
  Serious: Yes (Other)
  Sender: FDA-Public Use
  Company Number: NL-TEVA-2020-NL-1231753

PATIENT
  Age: 53 Year
  Sex: Female
  Weight: 51 kg

DRUGS (9)
  1. PARACETAMOL TABLET  500MG [Concomitant]
     Active Substance: ACETAMINOPHEN
     Dosage: 1000 MG
  2. MIDAZOLAM TABLET 15MG [Concomitant]
     Dosage: 15 MG
  3. VALPROINEZUUR TABLET MGA 500MG (ZUUR+NA-ZOUT) [Concomitant]
     Dosage: 500 MG
  4. LOPERAMIDE CAPSULE 2MG [Concomitant]
     Dosage: 1 DOSAGE FORMS
  5. RISPERIDONE. [Suspect]
     Active Substance: RISPERIDONE
     Indication: BEHAVIOUR DISORDER
     Dosage: 10 MG
     Dates: start: 20200127, end: 20200309
  6. LEVETIRACETAM DRANK 100MG/ML [Concomitant]
     Dosage: 2D 1 DOSAGE FORMS
  7. OMEPRAZOL TEVA CAPSULE MSR 40MG [Concomitant]
     Dosage: 80 MG
  8. COLECALCIFEROL TABLET   800IE [Concomitant]
     Dosage: 800 IU
  9. LACOSAMIDE TABLET  50MG [Concomitant]
     Dosage: 50 MG

REACTIONS (1)
  - Pancytopenia [Recovered/Resolved]

NARRATIVE: CASE EVENT DATE: 20200305
